FAERS Safety Report 8247726-X (Version None)
Quarter: 2012Q1

REPORT INFORMATION
  Report Type: 
  Country: None (occurrence: None)
  Receive Date: 20120330
  Receipt Date: 20120326
  Transmission Date: 20120608
  Serious: Yes (Congenital Anomaly)
  Sender: FDA-Public Use
  Company Number: US-GLAXOSMITHKLINE-A0950465A

PATIENT
  Sex: Female

DRUGS (3)
  1. VICODIN [Concomitant]
     Indication: HEADACHE
     Route: 064
  2. TYLENOL [Concomitant]
     Route: 064
  3. PAXIL CR [Suspect]
     Indication: PRODUCT USED FOR UNKNOWN INDICATION
     Route: 064

REACTIONS (2)
  - CLEFT PALATE [None]
  - FOETAL EXPOSURE DURING PREGNANCY [None]
